FAERS Safety Report 6740566-X (Version None)
Quarter: 2010Q2

REPORT INFORMATION
  Report Type: 
  Country: None (occurrence: None)
  Receive Date: 20100525
  Receipt Date: 20100519
  Transmission Date: 20101027
  Serious: Yes (Death, Other)
  Sender: FDA-Public Use
  Company Number: GB-AMGEN-QUU410974

PATIENT
  Sex: Female
  Weight: 76 kg

DRUGS (7)
  1. ENBREL [Suspect]
     Indication: RHEUMATOID ARTHRITIS
     Route: 058
     Dates: start: 20071108, end: 20100411
  2. ACETAMINOPHEN AND CODEINE PHOSPHATE [Concomitant]
     Dosage: 30/500 MG X2 OMNI NOCTE
     Route: 048
  3. TRAZODONE HCL [Concomitant]
     Dosage: UNKNOWN
  4. PULMICORT [Concomitant]
  5. LANSOPRAZOLE [Concomitant]
     Dosage: UNKNOWN
  6. QUININE SULFATE [Concomitant]
     Route: 048
  7. ARCOXIA [Concomitant]
     Dosage: UNKNOWN
     Route: 048

REACTIONS (4)
  - ARTERIOSCLEROSIS CORONARY ARTERY [None]
  - BRONCHOPNEUMONIA [None]
  - CARDIAC FAILURE ACUTE [None]
  - MYOCARDIAL ISCHAEMIA [None]
